FAERS Safety Report 4559433-5 (Version None)
Quarter: 2005Q1

REPORT INFORMATION
  Report Type: 
  Country: None (occurrence: None)
  Receive Date: 20050119
  Receipt Date: 20050106
  Transmission Date: 20050727
  Serious: Yes (Hospitalization)
  Sender: FDA-Public Use
  Company Number: 2004UW22919

PATIENT
  Age: 63 Year
  Sex: Male

DRUGS (4)
  1. CRESTOR [Suspect]
     Dosage: 40 MG
  2. COUMADIN [Concomitant]
  3. LIPITOR [Concomitant]
  4. RAMIPRIL [Concomitant]

REACTIONS (5)
  - HAEMATURIA [None]
  - HEPATIC ENZYME INCREASED [None]
  - INTERNATIONAL NORMALISED RATIO INCREASED [None]
  - JAUNDICE [None]
  - PROTHROMBIN TIME PROLONGED [None]
